FAERS Safety Report 6966721-1 (Version None)
Quarter: 2010Q3

REPORT INFORMATION
  Report Type: 
  Country: None (occurrence: None)
  Receive Date: 20100906
  Receipt Date: 20100830
  Transmission Date: 20110219
  Serious: Yes (Other)
  Sender: FDA-Public Use
  Company Number: US-ASTRAZENECA-2007UW27677

PATIENT
  Age: 30 Year
  Sex: Male
  Weight: 65.8 kg

DRUGS (17)
  1. SEROQUEL [Suspect]
     Indication: SLEEP DISORDER
     Route: 048
     Dates: start: 19980101
  2. SEROQUEL [Suspect]
     Indication: ANXIETY
     Route: 048
     Dates: start: 19980101
  3. SEROQUEL [Suspect]
     Indication: DEPRESSION
     Route: 048
     Dates: start: 19980101
  4. SEROQUEL [Suspect]
     Dosage: 100MG-200MG
     Route: 048
     Dates: start: 20061001
  5. SEROQUEL [Suspect]
     Dosage: 100MG-200MG
     Route: 048
     Dates: start: 20061001
  6. SEROQUEL [Suspect]
     Dosage: 100MG-200MG
     Route: 048
     Dates: start: 20061001
  7. SEROQUEL [Suspect]
     Dosage: 100MG
     Route: 048
     Dates: start: 20061101, end: 20071001
  8. SEROQUEL [Suspect]
     Dosage: 100MG
     Route: 048
     Dates: start: 20061101, end: 20071001
  9. SEROQUEL [Suspect]
     Dosage: 100MG
     Route: 048
     Dates: start: 20061101, end: 20071001
  10. ZYRTEC [Concomitant]
  11. PREVACID [Concomitant]
  12. ACTOS [Concomitant]
  13. METFORMIN [Concomitant]
  14. ATENOLOL [Concomitant]
  15. ALPRAZOLAM [Concomitant]
  16. OXYCODONE [Concomitant]
  17. GLIPIZIDE [Concomitant]

REACTIONS (5)
  - DIABETES MELLITUS [None]
  - DIABETIC COMPLICATION [None]
  - HYPERGLYCAEMIA [None]
  - LIMB INJURY [None]
  - TYPE 2 DIABETES MELLITUS [None]
